FAERS Safety Report 9871611 (Version 2)
Quarter: 2014Q1

REPORT INFORMATION
  Report Type: Report from Study
  Country: FR (occurrence: FR)
  Receive Date: 20140205
  Receipt Date: 20140205
  Transmission Date: 20141002
  Serious: Yes (Life-Threatening, Hospitalization, Disabling)
  Sender: FDA-Public Use
  Company Number: FR-B.I. PHARMACEUTICALS,INC./RIDGEFIELD-2012-RD-00714EU

PATIENT
  Age: 47 Year
  Sex: Female
  Weight: 62 kg

DRUGS (6)
  1. BIBW 2992 [Suspect]
     Indication: HER-2 POSITIVE BREAST CANCER
     Dates: start: 20120927
  2. BIBW 2992 [Suspect]
     Indication: METASTASES TO CENTRAL NERVOUS SYSTEM
  3. VINORELBINE [Suspect]
     Indication: HER-2 POSITIVE BREAST CANCER
     Dates: start: 20120927
  4. VINORELBINE [Suspect]
     Indication: METASTASES TO CENTRAL NERVOUS SYSTEM
  5. TRIAL PROCEDURE [Suspect]
     Indication: HER-2 POSITIVE BREAST CANCER
  6. TRIAL PROCEDURE [Suspect]
     Indication: METASTASES TO CENTRAL NERVOUS SYSTEM

REACTIONS (5)
  - Urosepsis [Recovered/Resolved with Sequelae]
  - Lung infection [Recovered/Resolved]
  - Rash [Recovered/Resolved]
  - Epilepsy [Recovered/Resolved]
  - Asthenia [Unknown]
